FAERS Safety Report 19724184 (Version 2)
Quarter: 2021Q3

REPORT INFORMATION
  Report Type: Spontaneous
  Country: US (occurrence: US)
  Receive Date: 20210820
  Receipt Date: 20210826
  Transmission Date: 20211014
  Serious: Yes (Other)
  Sender: FDA-Public Use
  Company Number: US-JNJFOC-20210830395

PATIENT

DRUGS (1)
  1. BENADRYL ALLERGY ULTRATAB [Suspect]
     Active Substance: DIPHENHYDRAMINE HYDROCHLORIDE
     Indication: HYPERSENSITIVITY
     Route: 065

REACTIONS (1)
  - Loss of consciousness [Recovered/Resolved]
